FAERS Safety Report 26066879 (Version 1)
Quarter: 2025Q4

REPORT INFORMATION
  Report Type: Spontaneous
  Country: US (occurrence: US)
  Receive Date: 20251119
  Receipt Date: 20251119
  Transmission Date: 20260118
  Serious: No
  Sender: GALDERMA
  Company Number: US-GALDERMA-US2025023243

PATIENT

DRUGS (1)
  1. NEMLUVIO [Suspect]
     Active Substance: NEMOLIZUMAB-ILTO
     Indication: Dermatitis atopic
     Route: 058

REACTIONS (8)
  - Urticaria [Unknown]
  - Arthralgia [Unknown]
  - Pruritus [Unknown]
  - Myalgia [Unknown]
  - Headache [Unknown]
  - Eczema [Unknown]
  - Dermatitis atopic [Unknown]
  - Eczema nummular [Unknown]
